FAERS Safety Report 4802403-X (Version None)
Quarter: 2005Q4

REPORT INFORMATION
  Report Type: 
  Country: None (occurrence: None)
  Receive Date: 20051013
  Receipt Date: 20050930
  Transmission Date: 20060501
  Serious: Yes (Hospitalization, Other)
  Sender: FDA-Public Use
  Company Number: 2005136406

PATIENT
  Sex: Male
  Weight: 77.1115 kg

DRUGS (7)
  1. DILANTIN [Suspect]
     Indication: CONVULSION
     Dosage: UNKNOWN
     Route: 065
  2. NEURONTIN [Suspect]
     Indication: CONVULSION
     Dosage: 7200 MG (2400 MG, 3 IN 1 D), UNKNOWN
     Route: 065
  3. TEGRETOL [Concomitant]
  4. ZYPREXA [Concomitant]
  5. ANTIHYPERTENSIVES (ANTIHYPERTENSIVES) [Concomitant]
  6. BUSPAR [Concomitant]
  7. XANAX [Concomitant]

REACTIONS (5)
  - BLOOD PRESSURE INCREASED [None]
  - CONVULSION [None]
  - DRUG LEVEL BELOW THERAPEUTIC [None]
  - ECONOMIC PROBLEM [None]
  - TREATMENT NONCOMPLIANCE [None]
